FAERS Safety Report 6046159-4 (Version None)
Quarter: 2009Q1

REPORT INFORMATION
  Report Type: 
  Country: None (occurrence: None)
  Receive Date: 20090121
  Receipt Date: 20090121
  Transmission Date: 20090719
  Serious: Yes (Hospitalization)
  Sender: FDA-Public Use
  Company Number: None

PATIENT
  Age: 47 Year
  Sex: Female
  Weight: 65 kg

DRUGS (2)
  1. LORAZEPAM [Suspect]
     Indication: BIPOLAR DISORDER
     Dosage: 2 MG BID PO
     Route: 048
     Dates: start: 20060110, end: 20090118
  2. LORAZEPAM [Suspect]
     Indication: MANIA
     Dosage: 2 MG BID PO
     Route: 048
     Dates: start: 20060110, end: 20090118

REACTIONS (5)
  - DRUG SCREEN POSITIVE [None]
  - INCORRECT DOSE ADMINISTERED [None]
  - INTENTIONAL DRUG MISUSE [None]
  - SEDATION [None]
  - SOMNOLENCE [None]
